FAERS Safety Report 18276150 (Version 1)
Quarter: 2020Q3

REPORT INFORMATION
  Report Type: Spontaneous
  Country: US (occurrence: US)
  Receive Date: 20200917
  Receipt Date: 20200917
  Transmission Date: 20201103
  Serious: No
  Sender: FDA-Public Use
  Company Number: US-BION-008368

PATIENT

DRUGS (1)
  1. BIONPHARMA^S CETIRIZINE 10 MG SOFTGELS 25CT [Suspect]
     Active Substance: CETIRIZINE HYDROCHLORIDE
     Indication: CHRONIC SPONTANEOUS URTICARIA
     Dosage: STRENGTH: 10 MG

REACTIONS (2)
  - Somnolence [Unknown]
  - Drug effective for unapproved indication [Not Recovered/Not Resolved]
